FAERS Safety Report 19774332 (Version 15)
Quarter: 2023Q1

REPORT INFORMATION
  Report Type: Report from Study
  Country: AU (occurrence: AU)
  Receive Date: 20210901
  Receipt Date: 20230111
  Transmission Date: 20230418
  Serious: Yes (Hospitalization)
  Sender: FDA-Public Use
  Company Number: AU-BIOGEN-2021BI01018838

PATIENT
  Sex: Female

DRUGS (8)
  1. TYSABRI [Suspect]
     Active Substance: NATALIZUMAB
     Indication: Relapsing-remitting multiple sclerosis
     Dosage: 300 MG/15 ML WITH DOSE OF 20 MILLIGRAM/MILILITER
     Route: 050
     Dates: start: 20210524
  2. PFIZER-BIONTECH COVID-19 VACCINE [Suspect]
     Active Substance: TOZINAMERAN
     Indication: COVID-19 prophylaxis
     Dosage: 3RD BOOSTER DOSE
     Route: 050
     Dates: start: 20211029
  3. MODERNA COVID-19 VACCINE [Suspect]
     Active Substance: ELASOMERAN
     Indication: COVID-19 prophylaxis
     Dosage: 4TH COVID 19 VACCINATION
     Route: 050
     Dates: start: 202202
  4. ESCITALOPRAM [Concomitant]
     Active Substance: ESCITALOPRAM OXALATE
     Indication: Anxiety
     Route: 050
  5. NEXIUM [Concomitant]
     Active Substance: ESOMEPRAZOLE MAGNESIUM
     Indication: Gastrooesophageal reflux disease
     Route: 050
  6. ONDANSETRON [Concomitant]
     Active Substance: ONDANSETRON
     Indication: Nausea
     Dosage: PRN, AS NECESSARY
     Route: 050
  7. METAMUCIL [Concomitant]
     Active Substance: PLANTAGO SEED
     Indication: Product used for unknown indication
     Route: 050
  8. PALEXIA [Concomitant]
     Active Substance: TAPENTADOL HYDROCHLORIDE
     Indication: Pain
     Route: 050

REACTIONS (43)
  - Eye pain [Recovered/Resolved]
  - Migraine [Recovered/Resolved]
  - Asthenia [Recovered/Resolved]
  - Hypophagia [Not Recovered/Not Resolved]
  - Abdominal pain [Recovered/Resolved]
  - Paraesthesia [Recovered/Resolved]
  - Muscle spasms [Recovered/Resolved]
  - Multiple sclerosis pseudo relapse [Unknown]
  - Multiple sclerosis [Not Recovered/Not Resolved]
  - Disorientation [Not Recovered/Not Resolved]
  - Dysarthria [Not Recovered/Not Resolved]
  - Nausea [Not Recovered/Not Resolved]
  - Diarrhoea [Not Recovered/Not Resolved]
  - Hunger [Not Recovered/Not Resolved]
  - Back pain [Not Recovered/Not Resolved]
  - Weight decreased [Not Recovered/Not Resolved]
  - Overflow diarrhoea [Unknown]
  - Faecaloma [Recovered/Resolved]
  - Mobility decreased [Not Recovered/Not Resolved]
  - Vaccination failure [Unknown]
  - Multiple sclerosis relapse [Not Recovered/Not Resolved]
  - Abdominal tenderness [Not Recovered/Not Resolved]
  - Pelvic floor dysfunction [Not Recovered/Not Resolved]
  - Gastrointestinal disorder [Recovered/Resolved]
  - Facial pain [Recovered/Resolved]
  - Anxiety [Unknown]
  - Neuralgia [Unknown]
  - Hypoaesthesia [Unknown]
  - Chest discomfort [Unknown]
  - Burning sensation [Unknown]
  - Band sensation [Unknown]
  - Disturbance in attention [Unknown]
  - Confusional state [Unknown]
  - Constipation [Unknown]
  - Stress [Unknown]
  - Gastrointestinal pain [Not Recovered/Not Resolved]
  - Procedural pain [Recovered/Resolved]
  - Osteoporosis [Unknown]
  - Pain [Recovered/Resolved]
  - Upper respiratory tract congestion [Not Recovered/Not Resolved]
  - Fatigue [Not Recovered/Not Resolved]
  - Nasopharyngitis [Unknown]
  - Headache [Recovered/Resolved]

NARRATIVE: CASE EVENT DATE: 20210101
